FAERS Safety Report 18968262 (Version 2)
Quarter: 2022Q4

REPORT INFORMATION
  Report Type: Spontaneous
  Country: FR (occurrence: FR)
  Receive Date: 20210304
  Receipt Date: 20221103
  Transmission Date: 20230113
  Serious: Yes (Other)
  Sender: FDA-Public Use
  Company Number: None

PATIENT
  Sex: Male

DRUGS (10)
  1. FUROSEMIDE [Suspect]
     Active Substance: FUROSEMIDE
     Indication: Product used for unknown indication
     Dosage: UNK
     Route: 065
     Dates: start: 20201202
  2. MEROPENEM [Suspect]
     Active Substance: MEROPENEM
     Indication: Infection
     Dosage: 0.25 DOSAGE FORM, QH
     Route: 065
     Dates: start: 20201123, end: 20201214
  3. PROPOFOL [Suspect]
     Active Substance: PROPOFOL
     Indication: Product used for unknown indication
     Dosage: UNK
     Route: 065
     Dates: start: 20201021, end: 20201201
  4. PIPERACILLIN [Suspect]
     Active Substance: PIPERACILLIN
     Indication: Product used for unknown indication
     Dosage: UNK
     Route: 065
     Dates: start: 20201123, end: 20201129
  5. SUFENTANIL [Suspect]
     Active Substance: SUFENTANIL
     Indication: Product used for unknown indication
     Dosage: UNK
     Route: 065
     Dates: start: 20201021, end: 20201201
  6. MORPHINE SULFATE [Suspect]
     Active Substance: MORPHINE SULFATE
     Indication: Product used for unknown indication
     Dosage: UNK
     Route: 065
     Dates: start: 20201118, end: 20201210
  7. CALCIPARINE [Suspect]
     Active Substance: HEPARIN CALCIUM
     Indication: Cardiovascular event prophylaxis
     Dosage: UNK
     Route: 065
     Dates: start: 20201116, end: 20201216
  8. NOREPINEPHRINE [Suspect]
     Active Substance: NOREPINEPHRINE
     Indication: Product used for unknown indication
     Dosage: UNK
     Route: 065
     Dates: start: 20201117, end: 20201213
  9. IODINE [Suspect]
     Active Substance: IODINE
     Indication: Product used for unknown indication
     Dosage: UNK
     Route: 065
  10. INSULIN HUMAN [Suspect]
     Active Substance: INSULIN HUMAN
     Indication: Product used for unknown indication
     Dosage: UNK
     Route: 065

REACTIONS (4)
  - Hyperleukocytosis [Recovering/Resolving]
  - Eosinophilia [Recovering/Resolving]
  - Haematoma [Unknown]
  - Rash maculo-papular [Recovering/Resolving]

NARRATIVE: CASE EVENT DATE: 20201127
